FAERS Safety Report 16420381 (Version 1)
Quarter: 2019Q2

REPORT INFORMATION
  Report Type: Report from Study
  Country: FR (occurrence: FR)
  Receive Date: 20190612
  Receipt Date: 20190612
  Transmission Date: 20190711
  Serious: Yes (Hospitalization)
  Sender: FDA-Public Use
  Company Number: FR-JNJFOC-20190609640

PATIENT
  Age: 60 Year
  Sex: Female
  Weight: 74 kg

DRUGS (15)
  1. ENBREL [Concomitant]
     Active Substance: ETANERCEPT
     Route: 058
     Dates: start: 20150423, end: 20160919
  2. ETIFOXINE [Concomitant]
     Active Substance: ETIFOXINE
     Route: 065
  3. DERMOVAL [Concomitant]
     Route: 065
     Dates: start: 20180917, end: 20180917
  4. STELARA [Suspect]
     Active Substance: USTEKINUMAB
     Indication: PSORIASIS
     Route: 058
     Dates: start: 20160919, end: 201701
  5. ENBREL [Concomitant]
     Active Substance: ETANERCEPT
     Route: 058
     Dates: start: 20150123, end: 20150423
  6. DICLOFENAC DIETHYLAMINE [Concomitant]
     Active Substance: DICLOFENAC DIETHYLAMINE
     Route: 065
  7. PANTOPRAZOLE [Concomitant]
     Active Substance: PANTOPRAZOLE
     Route: 065
  8. ARAVA [Concomitant]
     Active Substance: LEFLUNOMIDE
     Route: 065
     Dates: start: 20170706, end: 20190603
  9. METHOTREXATE. [Concomitant]
     Active Substance: METHOTREXATE
     Route: 065
     Dates: start: 2012, end: 2012
  10. ACITRETIN. [Concomitant]
     Active Substance: ACITRETIN
     Route: 065
     Dates: start: 2013, end: 2013
  11. STELARA [Suspect]
     Active Substance: USTEKINUMAB
     Indication: PSORIASIS
     Route: 058
     Dates: start: 201701, end: 20190129
  12. MIANSERIN [Concomitant]
     Active Substance: MIANSERIN
     Route: 065
  13. PRAVASTATINE [Concomitant]
     Active Substance: PRAVASTATIN
     Route: 065
  14. ARCOXIA [Concomitant]
     Active Substance: ETORICOXIB
     Route: 065
     Dates: start: 20170706, end: 20170925
  15. CLORAZEPATE DIPOTASSIUM. [Concomitant]
     Active Substance: CLORAZEPATE DIPOTASSIUM
     Route: 065

REACTIONS (3)
  - Pleomorphic adenoma [Recovered/Resolved]
  - Off label use [Unknown]
  - Product use issue [Unknown]

NARRATIVE: CASE EVENT DATE: 20160919
